FAERS Safety Report 8179317-3 (Version None)
Quarter: 2012Q1

REPORT INFORMATION
  Report Type: 
  Country: None (occurrence: None)
  Receive Date: 20120229
  Receipt Date: 20120229
  Transmission Date: 20120608
  Serious: Yes (Other)
  Sender: FDA-Public Use
  Company Number: None

PATIENT
  Age: 64 Year
  Sex: Male
  Weight: 102.5129 kg

DRUGS (1)
  1. PRADAXA [Suspect]
     Indication: ATRIAL FIBRILLATION
     Dosage: 2 TABS A DAY
     Dates: start: 20111101, end: 20120202

REACTIONS (3)
  - RECTAL HAEMORRHAGE [None]
  - EPISTAXIS [None]
  - MIGRAINE [None]
